FAERS Safety Report 7570556-9 (Version None)
Quarter: 2011Q2

REPORT INFORMATION
  Report Type: 
  Country: None (occurrence: None)
  Receive Date: 20110620
  Receipt Date: 20110613
  Transmission Date: 20111010
  Serious: Yes (Other)
  Sender: FDA-Public Use
  Company Number: 2011SP027589

PATIENT
  Age: 71 Year
  Sex: Male

DRUGS (2)
  1. LUVOX [Suspect]
     Indication: PRODUCT USED FOR UNKNOWN INDICATION
     Dosage: 25 MG, QD, PO
     Route: 048
     Dates: start: 20110519, end: 20110606
  2. MIRTAZAPINE [Suspect]
     Indication: DEPRESSION
     Dosage: 7.5 MG, QD, PO
     Route: 048
     Dates: start: 20110519, end: 20110606

REACTIONS (1)
  - LIVER DISORDER [None]
